FAERS Safety Report 7770763-6 (Version None)
Quarter: 2011Q3

REPORT INFORMATION
  Report Type: 
  Country: None (occurrence: None)
  Receive Date: 20110922
  Receipt Date: 20110606
  Transmission Date: 20111222
  Serious: No
  Sender: FDA-Public Use
  Company Number: US-ASTRAZENECA-2011SE34638

PATIENT
  Age: 57 Year
  Sex: Female
  Weight: 50.8 kg

DRUGS (7)
  1. ALTACE [Concomitant]
     Indication: HYPERTENSION
  2. SEROQUEL [Suspect]
     Route: 048
  3. SEROQUEL [Suspect]
     Route: 048
  4. COREG [Concomitant]
     Indication: CARDIAC DISORDER
  5. SEROQUEL [Suspect]
     Indication: BIPOLAR DISORDER
     Dosage: TOTAL DAILY DOSE - 200 MG, FREQUENCY- TWO TIMES A DAY
     Route: 048
     Dates: start: 20020101, end: 20100101
  6. CYMBALTA [Concomitant]
  7. NEXIUM [Concomitant]
     Indication: ABDOMINAL DISCOMFORT

REACTIONS (4)
  - INSOMNIA [None]
  - DRUG DOSE OMISSION [None]
  - APHAGIA [None]
  - PRESYNCOPE [None]
